FAERS Safety Report 6282868-X (Version None)
Quarter: 2009Q3

REPORT INFORMATION
  Report Type: 
  Country: None (occurrence: None)
  Receive Date: 20090724
  Receipt Date: 20090715
  Transmission Date: 20100115
  Serious: Yes (Other)
  Sender: FDA-Public Use
  Company Number: US-GENENTECH-287018

PATIENT
  Sex: Female
  Weight: 24 kg

DRUGS (1)
  1. SOMATROPIN [Suspect]
     Indication: CYTOGENETIC ABNORMALITY
     Dosage: 1 MG, 7/WEEK
     Dates: start: 20041116

REACTIONS (1)
  - JUVENILE ARTHRITIS [None]
